FAERS Safety Report 10974222 (Version 1)
Quarter: 2015Q2

REPORT INFORMATION
  Report Type: Spontaneous
  Country: US (occurrence: US)
  Receive Date: 20150401
  Receipt Date: 20150401
  Transmission Date: 20150821
  Serious: Yes (Other)
  Sender: FDA-Public Use
  Company Number: US-PFIZER INC-2015107352

PATIENT
  Age: 79 Year
  Sex: Male

DRUGS (1)
  1. TORISEL [Suspect]
     Active Substance: TEMSIROLIMUS
     Indication: METASTATIC RENAL CELL CARCINOMA
     Dosage: UNK

REACTIONS (6)
  - Metastatic renal cell carcinoma [Unknown]
  - Cataract [Unknown]
  - Dyspnoea exertional [Unknown]
  - Hyperglycaemia [Unknown]
  - Disease progression [Unknown]
  - Weight decreased [Unknown]
